FAERS Safety Report 10050947 (Version 1)
Quarter: 2014Q2

REPORT INFORMATION
  Report Type: Spontaneous
  Country: US (occurrence: US)
  Receive Date: 20140401
  Receipt Date: 20140401
  Transmission Date: 20141212
  Serious: Yes (Other)
  Sender: FDA-Public Use
  Company Number: US-GLAXOSMITHKLINE-A1067512A

PATIENT
  Age: 62 Year
  Sex: Female

DRUGS (2)
  1. AVANDAMET [Suspect]
     Indication: METABOLIC DISORDER
     Route: 065
     Dates: start: 20110720
  2. LOVAZA [Suspect]
     Indication: CARDIOVASCULAR DISORDER
     Dosage: 1G UNKNOWN
     Route: 065
     Dates: start: 20110720

REACTIONS (1)
  - Chemotherapy [Unknown]
